FAERS Safety Report 4389736-9 (Version None)
Quarter: 2004Q2

REPORT INFORMATION
  Report Type: 
  Country: None (occurrence: None)
  Receive Date: 20040630
  Receipt Date: 20040622
  Transmission Date: 20050107
  Serious: Yes (Other)
  Sender: FDA-Public Use
  Company Number: 2003-04-1715

PATIENT
  Age: 75 Year
  Sex: Male
  Weight: 123 kg

DRUGS (1)
  1. INTRON A [Suspect]
     Indication: MALIGNANT MELANOMA
     Dosage: 44-10 MIU* INTRAVENOUS
     Route: 042
     Dates: start: 20030317, end: 20040311

REACTIONS (15)
  - BRADYPHRENIA [None]
  - DECREASED APPETITE [None]
  - DEPRESSION [None]
  - DRY MOUTH [None]
  - DYSARTHRIA [None]
  - DYSGEUSIA [None]
  - FATIGUE [None]
  - FEELING ABNORMAL [None]
  - GAIT DISTURBANCE [None]
  - LYMPHADENOPATHY [None]
  - NAUSEA [None]
  - NERVOUS SYSTEM DISORDER [None]
  - NEUTROPENIA [None]
  - WEIGHT DECREASED [None]
  - WHITE BLOOD CELL COUNT DECREASED [None]
